FAERS Safety Report 25263636 (Version 1)
Quarter: 2025Q2

REPORT INFORMATION
  Report Type: Spontaneous
  Country: FR (occurrence: FR)
  Receive Date: 20250502
  Receipt Date: 20250502
  Transmission Date: 20250717
  Serious: Yes (Hospitalization)
  Sender: TEVA
  Company Number: None

PATIENT
  Age: 30 Year
  Sex: Male
  Weight: 76 kg

DRUGS (8)
  1. CLOZAPINE [Suspect]
     Active Substance: CLOZAPINE
     Indication: Schizophrenia
     Route: 048
     Dates: start: 20241224
  2. VALIUM [Concomitant]
     Active Substance: DIAZEPAM
     Indication: Schizophrenia
     Route: 048
     Dates: start: 20241221
  3. PAROXETINE MESYLATE [Concomitant]
     Active Substance: PAROXETINE MESYLATE
     Indication: Schizophrenia
     Route: 048
     Dates: start: 20241221
  4. LOXAPINE [Concomitant]
     Active Substance: LOXAPINE
     Indication: Schizophrenia
     Route: 048
     Dates: start: 20241221
  5. NICOPATCH [Concomitant]
     Active Substance: NICOTINE
     Indication: Ex-tobacco user
     Route: 003
  6. TROPATEPINE HYDROCHLORIDE [Concomitant]
     Active Substance: TROPATEPINE HYDROCHLORIDE
     Indication: Parkinsonism
     Route: 048
     Dates: start: 20241221
  7. NICORETTE [Concomitant]
     Active Substance: NICOTINE
     Indication: Ex-tobacco user
     Route: 048
  8. LOVENOX [Concomitant]
     Active Substance: ENOXAPARIN SODIUM
     Indication: Cardiovascular event prophylaxis
     Dosage: 4000 IU ANTI-XA/0.4 ML
     Route: 058

REACTIONS (1)
  - Myocarditis [Recovering/Resolving]

NARRATIVE: CASE EVENT DATE: 20250109
